FAERS Safety Report 10337260 (Version 1)
Quarter: 2014Q3

REPORT INFORMATION
  Report Type: Spontaneous
  Country: US (occurrence: US)
  Receive Date: 20140723
  Receipt Date: 20140723
  Transmission Date: 20150326
  Serious: Yes (Other)
  Sender: FDA-Public Use
  Company Number: US-MYLANLABS-2014S1016885

PATIENT
  Age: 37 Year
  Sex: Female

DRUGS (3)
  1. DULOXETINE [Concomitant]
     Active Substance: DULOXETINE
     Route: 065
  2. TRAMADOL [Suspect]
     Active Substance: TRAMADOL
     Dosage: RANGED FROM 100-200MG DAILY
     Route: 065
  3. LEVOTHYROXINE SODIUM. [Concomitant]
     Active Substance: LEVOTHYROXINE SODIUM
     Indication: HYPOTHYROIDISM
     Route: 065

REACTIONS (2)
  - Sleep apnoea syndrome [Recovering/Resolving]
  - Condition aggravated [Recovering/Resolving]
